FAERS Safety Report 13207171 (Version 2)
Quarter: 2017Q2

REPORT INFORMATION
  Report Type: Spontaneous
  Country: US (occurrence: US)
  Receive Date: 20170209
  Receipt Date: 20170503
  Transmission Date: 20170830
  Serious: No
  Sender: FDA-Public Use
  Company Number: US-SA-2016SA211543

PATIENT
  Age: 68 Year
  Sex: Female
  Weight: 93.89 kg

DRUGS (6)
  1. SYNTHROID [Concomitant]
     Active Substance: LEVOTHYROXINE SODIUM
     Route: 048
  2. ALIROCUMAB PREFILLED PEN [Concomitant]
     Active Substance: ALIROCUMAB
     Dates: start: 20160307, end: 20160330
  3. ESCITALOPRAM OXALATE. [Concomitant]
     Active Substance: ESCITALOPRAM OXALATE
     Route: 048
  4. PRALUENT [Suspect]
     Active Substance: ALIROCUMAB
     Indication: HYPERLIPIDAEMIA
     Route: 065
     Dates: start: 20160307, end: 20160330
  5. NITROSTAT [Concomitant]
     Active Substance: NITROGLYCERIN
     Route: 060
  6. LOSARTAN POTASSIUM. [Concomitant]
     Active Substance: LOSARTAN POTASSIUM
     Route: 048

REACTIONS (2)
  - Muscle twitching [Recovered/Resolved]
  - Muscle spasms [Recovered/Resolved]

NARRATIVE: CASE EVENT DATE: 20160330
